FAERS Safety Report 9701239 (Version 3)
Quarter: 2013Q4

REPORT INFORMATION
  Report Type: Spontaneous
  Country: US (occurrence: None)
  Receive Date: 20131119
  Receipt Date: 20131223
  Transmission Date: 20140711
  Serious: Yes (Hospitalization, Other)
  Sender: FDA-Public Use
  Company Number: AUR-APL-2013-09648

PATIENT
  Age: 10 Year
  Sex: Male

DRUGS (1)
  1. ZOLPIDEM [Suspect]
     Indication: PRODUCT USED FOR UNKNOWN INDICATION
     Route: 048

REACTIONS (9)
  - Accidental exposure to product by child [None]
  - Depressed level of consciousness [None]
  - Depressed level of consciousness [None]
  - Nystagmus [None]
  - Snoring [None]
  - Blood pressure diastolic decreased [None]
  - Vomiting [None]
  - Unresponsive to stimuli [None]
  - Drug level increased [None]
